FAERS Safety Report 9472196 (Version 3)
Quarter: 2013Q4

REPORT INFORMATION
  Report Type: Report from Study
  Country: US (occurrence: US)
  Receive Date: 20130823
  Receipt Date: 20131001
  Transmission Date: 20140711
  Serious: Yes (Hospitalization)
  Sender: FDA-Public Use
  Company Number: US-CELGENEUS-163-C4047-13081887

PATIENT
  Age: 71 Year
  Sex: Male
  Weight: 76.4 kg

DRUGS (4)
  1. CC-4047 [Suspect]
     Indication: PLASMA CELL MYELOMA
     Dosage: 4 MILLIGRAM
     Route: 048
     Dates: start: 20121126, end: 20130812
  2. CC-4047 [Suspect]
     Dosage: 4 MILLIGRAM
     Route: 048
     Dates: start: 20130903
  3. CARFILZOMIB [Suspect]
     Indication: PLASMA CELL MYELOMA
     Dosage: 27 MILLIGRAM/SQ. METER
     Route: 041
     Dates: start: 20121126, end: 20130807
  4. CARFILZOMIB [Suspect]
     Dosage: 27 MILLIGRAM/SQ. METER
     Route: 041
     Dates: start: 20130903

REACTIONS (2)
  - Syncope [Recovering/Resolving]
  - Pneumonia aspiration [Recovered/Resolved]
